FAERS Safety Report 16476119 (Version 2)
Quarter: 2019Q2

REPORT INFORMATION
  Report Type: Report from Study
  Country: None (occurrence: US)
  Receive Date: 20190625
  Receipt Date: 20190626
  Transmission Date: 20190711
  Serious: Yes (Life-Threatening, Other)
  Sender: FDA-Public Use
  Company Number: US-ABBVIE-19K-163-2794587-00

PATIENT
  Age: 59 Year
  Sex: Female
  Weight: 95.79 kg

DRUGS (1)
  1. HUMIRA [Suspect]
     Active Substance: ADALIMUMAB
     Indication: RHEUMATOID ARTHRITIS
     Route: 058
     Dates: start: 20180617, end: 20190601

REACTIONS (4)
  - Vaginal mesh removal surgery [Recovered/Resolved]
  - Breast cancer female [Recovered/Resolved]
  - Bladder operation [Recovering/Resolving]
  - Toe amputation [Recovered/Resolved]

NARRATIVE: CASE EVENT DATE: 20190204
